FAERS Safety Report 6550791-9 (Version None)
Quarter: 2010Q1

REPORT INFORMATION
  Report Type: 
  Country: None (occurrence: None)
  Receive Date: 20100125
  Receipt Date: 20100113
  Transmission Date: 20100710
  Serious: Yes (Other)
  Sender: FDA-Public Use
  Company Number: GB-WATSON-2010-00468

PATIENT
  Age: 2 Year
  Sex: Female

DRUGS (5)
  1. FENTANYL CITRATE [Suspect]
     Indication: ANALGESIC THERAPY
     Dosage: UNK
     Route: 042
  2. ATRACURIUM BESYLATE [Suspect]
     Indication: MAINTENANCE OF ANAESTHESIA
     Dosage: UNK
     Route: 042
  3. PROPOFOL [Suspect]
     Indication: INDUCTION OF ANAESTHESIA
     Dosage: UNK
     Route: 042
  4. SEVOFLURANE [Suspect]
     Indication: MAINTENANCE OF ANAESTHESIA
     Dosage: UNK
     Route: 042
  5. DEXTROSE [Concomitant]
     Dosage: UNK

REACTIONS (2)
  - HYPOTENSION [None]
  - HYPOVOLAEMIA [None]
